FAERS Safety Report 4579504-7 (Version None)
Quarter: 2005Q1

REPORT INFORMATION
  Report Type: 
  Country: None (occurrence: None)
  Receive Date: 20050209
  Receipt Date: 20050131
  Transmission Date: 20050727
  Serious: Yes (Hospitalization)
  Sender: FDA-Public Use
  Company Number: ZONI002105

PATIENT
  Age: 31 Year
  Sex: Male

DRUGS (1)
  1. EXCEGRAN (ZONISAMIDE) [Suspect]
     Dosage: 200 MG, 1 IN 1 D, ORAL
     Route: 048

REACTIONS (3)
  - ANAEMIA FOLATE DEFICIENCY [None]
  - DISSEMINATED INTRAVASCULAR COAGULATION [None]
  - EPISTAXIS [None]
